FAERS Safety Report 17765321 (Version 3)
Quarter: 2022Q2

REPORT INFORMATION
  Report Type: Spontaneous
  Country: US (occurrence: US)
  Receive Date: 20200511
  Receipt Date: 20220621
  Transmission Date: 20220721
  Serious: No
  Sender: FDA-Public Use
  Company Number: US-PFIZER INC-2020186286

PATIENT
  Age: 54 Year
  Sex: Female

DRUGS (3)
  1. IBRANCE [Suspect]
     Active Substance: PALBOCICLIB
     Indication: Neoplasm malignant
     Dosage: 125 MG, CYCLIC [TAKE 1 TABLET DAILY (21 DAYS ON, 7 DAY]
     Route: 048
  2. IBRANCE [Suspect]
     Active Substance: PALBOCICLIB
     Dosage: 125 MG, CYCLIC (TAKE 1 TABLET (125 MG) DAILY ON DAYS 1 THROUGH 21 THEN 7 DAYS OFF )
     Route: 048
     Dates: start: 202004
  3. LETROZOLE [Concomitant]
     Active Substance: LETROZOLE
     Dosage: 2.5 MG

REACTIONS (5)
  - Nausea [Recovering/Resolving]
  - Vomiting [Recovered/Resolved]
  - Fatigue [Unknown]
  - Hair texture abnormal [Unknown]
  - Alopecia [Unknown]
